FAERS Safety Report 9475821 (Version 1)
Quarter: 2013Q3

REPORT INFORMATION
  Report Type: Spontaneous
  Country: US (occurrence: None)
  Receive Date: 20130821
  Receipt Date: 20130821
  Transmission Date: 20140515
  Serious: Yes (Hospitalization)
  Sender: FDA-Public Use
  Company Number: GAM-179-13-US

PATIENT
  Age: 68 Year
  Sex: Female

DRUGS (1)
  1. OCTAGAM [Suspect]
     Indication: PLASMA CELL MYELOMA
     Dosage: (1X 1 / D)
     Dates: start: 20130313, end: 20130313

REACTIONS (4)
  - Dizziness [None]
  - Blood pressure systolic increased [None]
  - Oxygen saturation decreased [None]
  - Anaphylactoid reaction [None]
